FAERS Safety Report 8325012-7 (Version None)
Quarter: 2012Q1

REPORT INFORMATION
  Report Type: 
  Country: None (occurrence: None)
  Receive Date: 20120315
  Receipt Date: 20110513
  Transmission Date: 20120608
  Serious: No
  Sender: FDA-Public Use
  Company Number: PHHY2011US14660

PATIENT
  Age: 41 Year
  Sex: Female

DRUGS (38)
  1. VITAMIN D [Concomitant]
  2. DEXAMETHASONE [Concomitant]
  3. PROVIGIL [Concomitant]
  4. AVINZA [Concomitant]
  5. FAMPRIDINE [Concomitant]
  6. TRILEPTAL [Concomitant]
  7. CYMBALTA [Concomitant]
  8. LIDOCAINE [Concomitant]
  9. FLOMAX [Concomitant]
  10. RITALIN LA [Concomitant]
  11. XANAX [Concomitant]
  12. TOPAMAX [Concomitant]
  13. SYNTHROID [Concomitant]
  14. VICOPROFEN (HYDROCODONE, HYDROCODONE BITARTRATE, IBUPROFEN) [Concomitant]
  15. RAZADYNE ER (GALANTAMINE HYDROBROMIDE) [Concomitant]
  16. DIAZEPAM [Concomitant]
  17. ALLEGRA-D 12 HOUR [Concomitant]
  18. ASTELIN [Concomitant]
  19. MEDROL [Concomitant]
  20. MARINOL [Concomitant]
  21. PROTONIX [Concomitant]
  22. ZANAFLEX [Concomitant]
  23. NEURONTIN [Concomitant]
  24. OXYCODONE HYDROCHLORIDE [Concomitant]
  25. XOPENEX [Concomitant]
  26. LYRICA [Concomitant]
  27. MORPHINE [Concomitant]
  28. DURAGESIC-100 [Concomitant]
  29. NUVIGIL [Concomitant]
  30. MESTINON [Concomitant]
  31. SKELAXIN [Concomitant]
  32. GILENYA [Suspect]
     Indication: MULTIPLE SCLEROSIS
     Dosage: 0.5 MG, QD, ORAL
     Route: 048
     Dates: start: 20110216, end: 20110220
  33. PRISTIQ [Concomitant]
  34. AMERGE [Concomitant]
  35. RITALIN [Concomitant]
  36. ACTIVELLA [Concomitant]
  37. MS CONTIN [Concomitant]
  38. COMPAZINE [Concomitant]

REACTIONS (4)
  - PYREXIA [None]
  - BACK PAIN [None]
  - HEADACHE [None]
  - FLUSHING [None]
